FAERS Safety Report 23670083 (Version 2)
Quarter: 2024Q2

REPORT INFORMATION
  Report Type: Spontaneous
  Country: JP (occurrence: JP)
  Receive Date: 20240325
  Receipt Date: 20240429
  Transmission Date: 20240716
  Serious: Yes (Other)
  Sender: FDA-Public Use
  Company Number: JP-BEH-2024170182

PATIENT
  Age: 13 Year
  Sex: Male
  Weight: 44 kg

DRUGS (2)
  1. IDELVION [Suspect]
     Active Substance: COAGULATION FACTOR IX RECOMBINANT HUMAN
     Indication: Factor IX deficiency
     Dosage: 2000 IU, QW
     Route: 042
     Dates: start: 20181004
  2. IDELVION [Suspect]
     Active Substance: COAGULATION FACTOR IX RECOMBINANT HUMAN
     Indication: Factor IX deficiency
     Dosage: 2000 IU, QW
     Route: 042
     Dates: start: 20181004

REACTIONS (4)
  - Muscle haemorrhage [Recovered/Resolved]
  - Peripheral swelling [Recovered/Resolved]
  - Limb mass [Recovered/Resolved]
  - Peripheral swelling [Recovered/Resolved]

NARRATIVE: CASE EVENT DATE: 20221201
